FAERS Safety Report 15678080 (Version 2)
Quarter: 2019Q1

REPORT INFORMATION
  Report Type: Spontaneous
  Country: US (occurrence: US)
  Receive Date: 20181201
  Receipt Date: 20190202
  Transmission Date: 20190417
  Serious: No
  Sender: FDA-Public Use
  Company Number: US-TEVA-2018-US-975081

PATIENT
  Age: 99 Year
  Sex: Female

DRUGS (4)
  1. GLYBURIDE. [Concomitant]
     Active Substance: GLYBURIDE
  2. CLONIDINE. [Suspect]
     Active Substance: CLONIDINE
     Indication: HYPERTENSION
     Dosage: .1 MILLIGRAM DAILY;
     Route: 062
     Dates: start: 201809
  3. PROCARDIA [Concomitant]
     Active Substance: NIFEDIPINE
  4. DICORVIN [Concomitant]
     Active Substance: SPIRAMYCIN

REACTIONS (1)
  - Drug ineffective [Unknown]

NARRATIVE: CASE EVENT DATE: 20181101
